FAERS Safety Report 10030927 (Version 2)
Quarter: 2014Q1

REPORT INFORMATION
  Report Type: Spontaneous
  Country: US (occurrence: US)
  Receive Date: 20140323
  Receipt Date: 20140323
  Transmission Date: 20141002
  Serious: Yes (Disabling)
  Sender: FDA-Public Use
  Company Number: US-GE HEALTHCARE MEDICAL DIAGNOSTICS-OSCN-PR-0801S-0028

PATIENT
  Sex: Female

DRUGS (8)
  1. OMNISCAN [Suspect]
     Indication: PANCREATITIS
     Dates: start: 20030808, end: 20030808
  2. OMNISCAN [Suspect]
     Indication: ASTHENIA
     Route: 042
     Dates: start: 20030811, end: 20030811
  3. OMNISCAN [Suspect]
     Indication: ABSCESS
     Route: 042
     Dates: start: 20031026, end: 20031026
  4. OMNISCAN [Suspect]
     Indication: VISUAL ACUITY REDUCED
     Route: 042
     Dates: start: 20060515, end: 20060515
  5. OMNISCAN [Suspect]
     Indication: THROMBOSIS
     Route: 042
     Dates: start: 20061009, end: 20061009
  6. OMNISCAN [Suspect]
     Indication: CEREBROVASCULAR ACCIDENT
     Route: 042
     Dates: start: 20061010, end: 20061010
  7. OMNISCAN [Suspect]
     Indication: SPINAL COLUMN STENOSIS
     Route: 042
     Dates: start: 20061013, end: 20061013
  8. MAGNEVIST [Suspect]
     Indication: PRODUCT USED FOR UNKNOWN INDICATION
     Route: 042
     Dates: start: 20061002, end: 20061002

REACTIONS (1)
  - Nephrogenic systemic fibrosis [Not Recovered/Not Resolved]
